FAERS Safety Report 14009067 (Version 1)
Quarter: 2017Q3

REPORT INFORMATION
  Report Type: Report from Study
  Country: JP (occurrence: JP)
  Receive Date: 20170925
  Receipt Date: 20170925
  Transmission Date: 20171128
  Serious: Yes (Hospitalization)
  Sender: FDA-Public Use
  Company Number: JP-DSJP-DSJ-2017-127382

PATIENT

DRUGS (3)
  1. EDOXABAN [Suspect]
     Active Substance: EDOXABAN TOSYLATE
     Indication: ATRIAL FIBRILLATION
     Dosage: 30 MG, QD
     Route: 048
     Dates: start: 20170314, end: 20170614
  2. BAYASPIRIN [Suspect]
     Active Substance: ASPIRIN
     Dosage: 100MG/DAY
     Route: 048
  3. NOR-ADRENALIN                      /00127502/ [Concomitant]
     Dosage: 0.1GAMMA/DAY
     Route: 042
     Dates: start: 20170616, end: 20170629

REACTIONS (5)
  - Portal venous gas [Recovered/Resolved]
  - Cardiac failure [Recovered/Resolved]
  - Epistaxis [Recovered/Resolved]
  - Pneumatosis intestinalis [Recovered/Resolved]
  - Gastrointestinal infection [Recovered/Resolved]

NARRATIVE: CASE EVENT DATE: 201704
